FAERS Safety Report 4586518-X (Version None)
Quarter: 2005Q1

REPORT INFORMATION
  Report Type: 
  Country: None (occurrence: None)
  Receive Date: 20050217
  Receipt Date: 20050217
  Transmission Date: 20050727
  Serious: Yes (Other)
  Sender: FDA-Public Use
  Company Number: None

PATIENT
  Sex: Female
  Weight: 87.0906 kg

DRUGS (1)
  1. ENDOCORT 5/325 [Suspect]
     Dosage: 1 TAB BID
     Dates: start: 20050121

REACTIONS (2)
  - LUNG TRANSPLANT [None]
  - PHARMACEUTICAL PRODUCT COMPLAINT [None]
